FAERS Safety Report 13881183 (Version 1)
Quarter: 2017Q3

REPORT INFORMATION
  Report Type: Spontaneous
  Country: JP (occurrence: JP)
  Receive Date: 20170818
  Receipt Date: 20170818
  Transmission Date: 20171127
  Serious: Yes (Other)
  Sender: FDA-Public Use
  Company Number: JP-PFIZER INC-2015233162

PATIENT

DRUGS (1)
  1. TORISEL [Suspect]
     Active Substance: TEMSIROLIMUS
     Indication: METASTATIC RENAL CELL CARCINOMA
     Dosage: 25 MG, DAILY
     Route: 041
     Dates: start: 20130527

REACTIONS (8)
  - Asthenia [Unknown]
  - General physical health deterioration [Unknown]
  - Erythema multiforme [Recovered/Resolved]
  - Renal cell carcinoma [Unknown]
  - Back pain [Unknown]
  - Condition aggravated [Unknown]
  - Disease progression [Unknown]
  - Ascites [Unknown]

NARRATIVE: CASE EVENT DATE: 20130603
